FAERS Safety Report 4784025-2 (Version None)
Quarter: 2005Q3

REPORT INFORMATION
  Report Type: 
  Country: None (occurrence: None)
  Receive Date: 20050927
  Receipt Date: 20050805
  Transmission Date: 20060218
  Serious: No
  Sender: FDA-Public Use
  Company Number: USA050291307

PATIENT
  Age: 46 Year
  Sex: Female
  Weight: 84 kg

DRUGS (5)
  1. STRATTERA [Suspect]
     Indication: ATTENTION DEFICIT/HYPERACTIVITY DISORDER
     Dosage: 100 MG DAY
     Dates: start: 20030101
  2. VERAPAMIL [Concomitant]
  3. HYZAAR [Concomitant]
  4. NORVASC [Concomitant]
  5. REMERON [Concomitant]

REACTIONS (4)
  - DYSPHEMIA [None]
  - MEMORY IMPAIRMENT [None]
  - READING DISORDER [None]
  - SHOULDER PAIN [None]
